FAERS Safety Report 15598311 (Version 7)
Quarter: 2019Q2

REPORT INFORMATION
  Report Type: Spontaneous
  Country: US (occurrence: US)
  Receive Date: 20181108
  Receipt Date: 20190524
  Transmission Date: 20190711
  Serious: Yes (Hospitalization, Other)
  Sender: FDA-Public Use
  Company Number: US-ALLERGAN-1830425US

PATIENT
  Sex: Male

DRUGS (3)
  1. VIBERZI [Concomitant]
     Active Substance: ELUXADOLINE
     Indication: IRRITABLE BOWEL SYNDROME
     Dosage: 100 MG
     Route: 048
  2. RAPAFLO [Suspect]
     Active Substance: SILODOSIN
     Indication: DYSURIA
     Dosage: 8 MG, QD
     Route: 048
     Dates: start: 2016
  3. RAPAFLO [Suspect]
     Active Substance: SILODOSIN
     Indication: PROSTATIC DISORDER

REACTIONS (17)
  - Weight increased [Unknown]
  - Arterial occlusive disease [Unknown]
  - Arthropathy [Unknown]
  - Glaucoma [Not Recovered/Not Resolved]
  - Dementia [Unknown]
  - Cataract [Not Recovered/Not Resolved]
  - Hypertension [Unknown]
  - Eye infection [Unknown]
  - Muscular weakness [Unknown]
  - Product dose omission [Unknown]
  - Off label use [Unknown]
  - Suicidal ideation [Unknown]
  - Dyspareunia [Not Recovered/Not Resolved]
  - Chest pain [Not Recovered/Not Resolved]
  - Urinary incontinence [Recovering/Resolving]
  - Drug ineffective for unapproved indication [Unknown]
  - Ejaculation failure [Not Recovered/Not Resolved]

NARRATIVE: CASE EVENT DATE: 201707
